FAERS Safety Report 19507268 (Version 1)
Quarter: 2021Q3

REPORT INFORMATION
  Report Type: Spontaneous
  Country: NL (occurrence: NL)
  Receive Date: 20210708
  Receipt Date: 20210708
  Transmission Date: 20211014
  Serious: Yes (Life-Threatening, Other)
  Sender: FDA-Public Use
  Company Number: NL-TEVA-2021-NL-1928566

PATIENT
  Age: 66 Year
  Sex: Female
  Weight: 98 kg

DRUGS (4)
  1. PREDNISON TABLET 5MG / BRAND NAME NOT SPECIFIED [Suspect]
     Active Substance: PREDNISONE
     Indication: PRODUCT USED FOR UNKNOWN INDICATION
     Dosage: 1DD 15 MG, TAPERING SCHEDULE OF 40 MG (START MARCH 2021) , THERAPY END DATE : ASKU
     Dates: start: 202103
  2. TAMOXIFEN TABLET 20MG / BRAND NAME NOT SPECIFIED [Suspect]
     Active Substance: TAMOXIFEN
     Indication: BREAST CANCER
     Dosage: 20 MG (MILLIGRAM) , THERAPY START DATE AND END DATE : ASKU
  3. AMITRIPTYLINE HCL TABLET 25MG / BRAND NAME NOT SPECIFIED [Concomitant]
     Dosage: 25 MG (MILLIGRAM) , THERAPY START DATE AND END DATE : ASKU
  4. KADCYLA [Suspect]
     Active Substance: ADO-TRASTUZUMAB EMTANSINE
     Indication: BREAST CANCER
     Dosage: INFUSION POWDER  , DOSE 3.6 MG/KG EVERY 21 DAYS , UNIT DOSE : 3.6 MG/KG
     Route: 042
     Dates: start: 202101, end: 20210611

REACTIONS (3)
  - Pulmonary embolism [Unknown]
  - Radiation pneumonitis [Unknown]
  - Pneumocystis jirovecii pneumonia [Recovering/Resolving]

NARRATIVE: CASE EVENT DATE: 202103
